FAERS Safety Report 7479420-7 (Version None)
Quarter: 2011Q2

REPORT INFORMATION
  Report Type: 
  Country: None (occurrence: None)
  Receive Date: 20110513
  Receipt Date: 20110509
  Transmission Date: 20111010
  Serious: Yes (Hospitalization)
  Sender: FDA-Public Use
  Company Number: FR-PFIZER INC-2011065302

PATIENT
  Age: 74 Year
  Sex: Male

DRUGS (23)
  1. ATENOLOL [Concomitant]
     Dosage: 50 MG, 1X/DAY IN THE MORNING
  2. FORLAX [Concomitant]
  3. OXACILLIN [Suspect]
     Dosage: 8 G IN 24 HOURS
     Route: 042
     Dates: start: 20110204
  4. EZETIMIBE [Concomitant]
     Dosage: 10 MG, 1X/DAY IN THE EVENING
  5. ACETAMINOPHEN [Concomitant]
  6. SOLU-MEDROL [Suspect]
     Dosage: 60 MG, 1X/DAY
     Route: 042
     Dates: start: 20110128, end: 20110201
  7. MORPHINE [Suspect]
     Dosage: 2 MG, 4X/DAY
     Route: 042
     Dates: start: 20110128, end: 20110128
  8. CYMBALTA [Concomitant]
     Dosage: 60 MG, 1X/DAY IN THE MORNING
  9. CLAFORAN [Suspect]
     Dosage: 2 G, 3X/DAY
     Route: 042
     Dates: start: 20110202, end: 20110204
  10. LYRICA [Concomitant]
     Dosage: 25 MG, 3X/DAY
  11. LEVOTHYROXINE SODIUM [Concomitant]
     Dosage: 125 UG, 1X/DAY IN THE MORNING
  12. OMEXEL [Concomitant]
     Dosage: 0.4 MG, 1X/DAY IN THE MORNING
  13. SPASFON [Concomitant]
  14. LANSOPRAZOLE [Concomitant]
     Dosage: 1 DF, 1X/DAY IN THE EVENING
  15. MIRTAZAPINE [Concomitant]
     Dosage: 2 DF, 1X/DAY IN THE EVENING
  16. MELAXOSE [Concomitant]
  17. VALIUM [Suspect]
     Dosage: 5 MG, 3X/DAY (EVERY 8 HOURS)
     Route: 042
     Dates: start: 20110128, end: 20110201
  18. WATER FOR INJECTION [Suspect]
     Dosage: UNK
  19. CLONAZEPAM [Concomitant]
     Dosage: 1XDAY AT BEDTIME
  20. FUCIDINE CAP [Suspect]
     Dosage: 500 MG, 3X/DAY
     Route: 042
     Dates: start: 20110215
  21. AMLODIPINE BESYLATE [Concomitant]
     Dosage: 5 UNK, UNK
  22. GENTAMICIN [Suspect]
     Dosage: 320 MG, 1X/DAY
     Route: 042
     Dates: start: 20110202, end: 20110215
  23. ORBENIN CAP [Suspect]
     Dosage: 2 G, 4X/DAY
     Route: 042
     Dates: start: 20110204

REACTIONS (2)
  - THROMBOPHLEBITIS SUPERFICIAL [None]
  - CATHETER SITE PHLEBITIS [None]
